FAERS Safety Report 8132949 (Version 9)
Quarter: 2013Q2

REPORT INFORMATION
  Report Type: Spontaneous
  Country: US (occurrence: None)
  Receive Date: 20110829
  Receipt Date: 20130606
  Transmission Date: 20140414
  Serious: Yes (Other)
  Sender: FDA-Public Use
  Company Number: JPI-P-015619

PATIENT
  Age: 57 Year
  Sex: Female
  Weight: 47.63 kg

DRUGS (11)
  1. XYREM [Suspect]
     Indication: SLEEP DISORDER
     Dosage: (2.25 GM)
     Route: 048
     Dates: start: 20050505
  2. XYREM [Suspect]
     Indication: FIBROMYALGIA
     Dosage: (2.25 GM)
     Route: 048
     Dates: start: 20050505
  3. CLONAZEPAM [Suspect]
     Indication: PRODUCT USED FOR UNKNOWN INDICATION
  4. CYCLOBENZAPRINE HYDROCHLORIDE [Concomitant]
  5. AMPHETAMINE , DEXTROMPHETAMINE MIXED SALTS (ADDERALL) [Concomitant]
  6. ACETAMINOPHEN W/OXYCODONE [Concomitant]
  7. METHADONE HYDROCHLORIDE [Concomitant]
  8. KETOROLAC TROMETHAMINE [Suspect]
     Indication: ANXIETY
  9. KETOROLAC TROMETHAMINE [Concomitant]
  10. VALACYCLOVIR HYDROCHLORIDE [Concomitant]
  11. IBUPROFEN [Concomitant]

REACTIONS (22)
  - Intervertebral disc protrusion [None]
  - Pain in extremity [None]
  - Fatigue [None]
  - Stress [None]
  - Mental impairment [None]
  - Crying [None]
  - Agitation [None]
  - Hypoaesthesia [None]
  - Restlessness [None]
  - Anxiety [None]
  - Foot deformity [None]
  - Toothache [None]
  - Spinal column stenosis [None]
  - Dental caries [None]
  - Seborrhoea [None]
  - Dry skin [None]
  - Pruritus [None]
  - Death of relative [None]
  - Endodontic procedure [None]
  - Convulsion [None]
  - Gingival erosion [None]
  - Muscle tightness [None]
